FAERS Safety Report 10014476 (Version 1)
Quarter: 2014Q1

REPORT INFORMATION
  Report Type: Report from Study
  Country: FR (occurrence: FR)
  Receive Date: 20140317
  Receipt Date: 20140317
  Transmission Date: 20141002
  Serious: Yes (Other)
  Sender: FDA-Public Use
  Company Number: FR-ROCHE-1366541

PATIENT
  Sex: 0

DRUGS (2)
  1. OMALIZUMAB [Suspect]
     Indication: ASTHMA
     Route: 065
  2. OMALIZUMAB [Suspect]
     Route: 065
     Dates: start: 200901

REACTIONS (1)
  - Shock [Unknown]
